FAERS Safety Report 17421988 (Version 2)
Quarter: 2020Q2

REPORT INFORMATION
  Report Type: Spontaneous
  Country: US (occurrence: US)
  Receive Date: 20200214
  Receipt Date: 20200513
  Transmission Date: 20200713
  Serious: Yes (Hospitalization)
  Sender: FDA-Public Use
  Company Number: US-ALLERGAN-2006611US

PATIENT
  Sex: Female

DRUGS (19)
  1. ISOSORBIDE. [Concomitant]
     Active Substance: ISOSORBIDE
  2. LUTEIN [Concomitant]
     Active Substance: LUTEIN
  3. LACTAID [Concomitant]
     Active Substance: LACTASE
  4. TRIMETHOPRIM. [Concomitant]
     Active Substance: TRIMETHOPRIM
  5. AZO [Concomitant]
     Active Substance: PHENAZOPYRIDINE HYDROCHLORIDE
     Dosage: UNK, PRN
  6. PLAVIX [Concomitant]
     Active Substance: CLOPIDOGREL BISULFATE
  7. COUMADIN [Concomitant]
     Active Substance: WARFARIN SODIUM
  8. DALVANCE [Suspect]
     Active Substance: DALBAVANCIN
     Indication: CELLULITIS
     Dosage: ACTUAL: 100 CUBIC CENTIMETERS
     Route: 042
     Dates: start: 20200204, end: 20200204
  9. NITRO [Concomitant]
     Active Substance: NITROGLYCERIN
     Route: 060
  10. SIMETHICONE (DIMETHICONE) [Concomitant]
     Active Substance: DIMETHICONE
     Dosage: UNK, PRN
  11. MAGNESIUM OXIDE. [Concomitant]
     Active Substance: MAGNESIUM OXIDE
  12. TYLENOL [Concomitant]
     Active Substance: ACETAMINOPHEN
     Dosage: UNK, PRN
  13. LEVOTHYROXINE. [Concomitant]
     Active Substance: LEVOTHYROXINE
  14. DOCUSATE SODIUM. [Concomitant]
     Active Substance: DOCUSATE SODIUM
  15. PHILLIPS LAXCAPS [Concomitant]
     Dosage: UNK, PRN
  16. LISINOPRIL. [Concomitant]
     Active Substance: LISINOPRIL
  17. POTASSIUM [Concomitant]
     Active Substance: POTASSIUM
     Dosage: 20 MEQ
  18. METOPROLOL. [Concomitant]
     Active Substance: METOPROLOL
  19. ZOFRAN [Concomitant]
     Active Substance: ONDANSETRON HYDROCHLORIDE
     Dosage: UNK, PRN

REACTIONS (6)
  - Pruritus [Recovered/Resolved]
  - Swollen tongue [Recovered/Resolved]
  - Blood pressure increased [Recovered/Resolved]
  - Anxiety [Recovered/Resolved]
  - Lip swelling [Recovered/Resolved]
  - Anaphylactic reaction [Recovered/Resolved]

NARRATIVE: CASE EVENT DATE: 20200204
